FAERS Safety Report 8422929-X (Version None)
Quarter: 2012Q2

REPORT INFORMATION
  Report Type: 
  Country: None (occurrence: None)
  Receive Date: 20120608
  Receipt Date: 20120531
  Transmission Date: 20120825
  Serious: Yes (Death)
  Sender: FDA-Public Use
  Company Number: US-GLAXOSMITHKLINE-B0718117A

PATIENT
  Age: 68 Year
  Sex: Female

DRUGS (8)
  1. AVANDIA [Suspect]
     Indication: DIABETES MELLITUS
     Dosage: 4MG TWICE PER DAY
     Route: 048
     Dates: start: 20010101, end: 20050101
  2. INSULIN [Concomitant]
  3. SYNTHROID [Concomitant]
  4. PERCOCET [Concomitant]
  5. HYDROCHLOROTHIAZIDE [Concomitant]
  6. PROZAC [Concomitant]
  7. OXYCONTIN [Concomitant]
  8. PRILOSEC [Concomitant]

REACTIONS (1)
  - MYOCARDIAL INFARCTION [None]
